FAERS Safety Report 18760118 (Version 20)
Quarter: 2025Q3

REPORT INFORMATION
  Report Type: Spontaneous
  Country: GB (occurrence: GB)
  Receive Date: 20210120
  Receipt Date: 20250822
  Transmission Date: 20251020
  Serious: Yes (Death, Other)
  Sender: ADVANZ PHARMA
  Company Number: GB-ROCHE-2729221

PATIENT

DRUGS (315)
  1. PREDNISOLONE [Suspect]
     Active Substance: PREDNISOLONE
     Indication: Diffuse large B-cell lymphoma
     Route: 050
  2. PREDNISOLONE [Suspect]
     Active Substance: PREDNISOLONE
     Indication: Product used for unknown indication
     Route: 048
     Dates: start: 20201118, end: 20201122
  3. PREDNISOLONE [Suspect]
     Active Substance: PREDNISOLONE
     Route: 048
     Dates: start: 20201124
  4. CYCLOPHOSPHAMIDE [Suspect]
     Active Substance: CYCLOPHOSPHAMIDE
     Indication: Diffuse large B-cell lymphoma
     Dosage: 3780 MG/M2, WEEKLY (1260 MILLIGRAM/SQ. METER, 3XW (TOTAL VOLUME PRIOR AE 313 MLDATE OF MOST RECENT D
     Route: 042
     Dates: start: 20201124
  5. CYCLOPHOSPHAMIDE [Suspect]
     Active Substance: CYCLOPHOSPHAMIDE
     Route: 042
  6. CYCLOPHOSPHAMIDE [Suspect]
     Active Substance: CYCLOPHOSPHAMIDE
     Route: 042
  7. CYCLOPHOSPHAMIDE [Suspect]
     Active Substance: CYCLOPHOSPHAMIDE
  8. CYCLOPHOSPHAMIDE [Suspect]
     Active Substance: CYCLOPHOSPHAMIDE
  9. CYCLOPHOSPHAMIDE [Suspect]
     Active Substance: CYCLOPHOSPHAMIDE
  10. CYCLOPHOSPHAMIDE [Suspect]
     Active Substance: CYCLOPHOSPHAMIDE
  11. CYCLOPHOSPHAMIDE [Suspect]
     Active Substance: CYCLOPHOSPHAMIDE
     Dates: start: 20201124
  12. CYCLOPHOSPHAMIDE [Suspect]
     Active Substance: CYCLOPHOSPHAMIDE
     Dosage: UNK
     Dates: start: 20201124
  13. CYCLOPHOSPHAMIDE [Suspect]
     Active Substance: CYCLOPHOSPHAMIDE
     Route: 042
  14. CYCLOPHOSPHAMIDE [Suspect]
     Active Substance: CYCLOPHOSPHAMIDE
     Route: 042
  15. CYCLOPHOSPHAMIDE [Suspect]
     Active Substance: CYCLOPHOSPHAMIDE
     Route: 042
  16. CYCLOPHOSPHAMIDE [Suspect]
     Active Substance: CYCLOPHOSPHAMIDE
     Route: 042
  17. CYCLOPHOSPHAMIDE [Suspect]
     Active Substance: CYCLOPHOSPHAMIDE
  18. CYCLOPHOSPHAMIDE [Suspect]
     Active Substance: CYCLOPHOSPHAMIDE
     Route: 042
  19. CYCLOPHOSPHAMIDE [Suspect]
     Active Substance: CYCLOPHOSPHAMIDE
     Route: 042
  20. CYCLOPHOSPHAMIDE [Suspect]
     Active Substance: CYCLOPHOSPHAMIDE
     Route: 042
  21. CYCLOPHOSPHAMIDE [Suspect]
     Active Substance: CYCLOPHOSPHAMIDE
     Route: 042
  22. RITUXIMAB [Suspect]
     Active Substance: RITUXIMAB
     Indication: Diffuse large B-cell lymphoma
     Dates: start: 20201221, end: 20201221
  23. RITUXIMAB [Suspect]
     Active Substance: RITUXIMAB
     Dates: start: 20210216, end: 20210216
  24. RITUXIMAB [Suspect]
     Active Substance: RITUXIMAB
     Route: 042
     Dates: start: 20201124
  25. RITUXIMAB [Suspect]
     Active Substance: RITUXIMAB
     Dates: start: 20210105, end: 20210216
  26. RITUXIMAB [Suspect]
     Active Substance: RITUXIMAB
     Route: 050
     Dates: start: 20210105, end: 20210216
  27. RITUXIMAB [Suspect]
     Active Substance: RITUXIMAB
     Route: 065
  28. RITUXIMAB [Suspect]
     Active Substance: RITUXIMAB
     Dates: start: 20201124
  29. RITUXIMAB [Suspect]
     Active Substance: RITUXIMAB
     Route: 042
     Dates: start: 20201124
  30. RITUXIMAB [Suspect]
     Active Substance: RITUXIMAB
  31. RITUXIMAB [Suspect]
     Active Substance: RITUXIMAB
  32. RITUXIMAB [Suspect]
     Active Substance: RITUXIMAB
     Dosage: 9 ML, WEEKLY (3 MILLILITER, 3XW)
     Dates: start: 20201221, end: 20201221
  33. RITUXIMAB [Suspect]
     Active Substance: RITUXIMAB
     Dosage: 1800 MG, WEEKLY (600 MILLIGRAM, 3XW)
     Dates: start: 20210105, end: 20210216
  34. RITUXIMAB [Suspect]
     Active Substance: RITUXIMAB
     Dosage: 9 ML, WEEKLY (3 MILLILITER, 3XW)
     Dates: start: 20210216, end: 20210216
  35. RITUXIMAB [Suspect]
     Active Substance: RITUXIMAB
  36. RITUXIMAB [Suspect]
     Active Substance: RITUXIMAB
  37. RITUXIMAB [Suspect]
     Active Substance: RITUXIMAB
  38. RITUXIMAB [Suspect]
     Active Substance: RITUXIMAB
  39. RITUXIMAB [Suspect]
     Active Substance: RITUXIMAB
  40. RITUXIMAB [Suspect]
     Active Substance: RITUXIMAB
  41. RITUXIMAB [Suspect]
     Active Substance: RITUXIMAB
     Dosage: 9 ML, WEEKLY (3 MILLILITER, 3XW)
     Dates: start: 20210216, end: 20210216
  42. RITUXIMAB [Suspect]
     Active Substance: RITUXIMAB
     Dosage: 1800 MG, WEEKLY (600 MILLIGRAM, 3XW (600 MG, TIW))
     Dates: end: 20210216
  43. RITUXIMAB [Suspect]
     Active Substance: RITUXIMAB
     Dosage: 9 ML, WEEKLY (3 MILLILITER, 3XW (3 ML, TIW))
     Dates: start: 20210216, end: 20210216
  44. RITUXIMAB [Suspect]
     Active Substance: RITUXIMAB
     Dosage: 9 ML, WEEKLY (3 MILLILITER, 3XW (3 ML, TIW, TIME INTERVAL: 0.33 WK))
     Dates: start: 20201221, end: 20201221
  45. RITUXIMAB [Suspect]
     Active Substance: RITUXIMAB
     Route: 042
  46. RITUXIMAB [Suspect]
     Active Substance: RITUXIMAB
     Route: 042
  47. RITUXIMAB [Suspect]
     Active Substance: RITUXIMAB
     Route: 042
  48. RITUXIMAB [Suspect]
     Active Substance: RITUXIMAB
     Route: 042
  49. RITUXIMAB [Suspect]
     Active Substance: RITUXIMAB
     Route: 042
     Dates: start: 20210105, end: 20210216
  50. RITUXIMAB [Suspect]
     Active Substance: RITUXIMAB
     Route: 042
  51. RITUXIMAB [Suspect]
     Active Substance: RITUXIMAB
     Route: 042
     Dates: start: 20201221, end: 20201221
  52. RITUXIMAB [Suspect]
     Active Substance: RITUXIMAB
  53. RITUXIMAB [Suspect]
     Active Substance: RITUXIMAB
  54. RITUXIMAB [Suspect]
     Active Substance: RITUXIMAB
     Dates: start: 20201215, end: 20201215
  55. RITUXIMAB [Suspect]
     Active Substance: RITUXIMAB
     Route: 042
     Dates: start: 20210105, end: 20210105
  56. RITUXIMAB [Suspect]
     Active Substance: RITUXIMAB
     Route: 042
     Dates: start: 20210126
  57. RITUXIMAB [Suspect]
     Active Substance: RITUXIMAB
     Route: 042
     Dates: start: 20210216
  58. RITUXIMAB [Suspect]
     Active Substance: RITUXIMAB
     Route: 042
  59. RITUXIMAB [Suspect]
     Active Substance: RITUXIMAB
     Dosage: 9 ML, WEEKLY (3 ML, TIW; ADDITIONAL INFO: ROUTE:UNKNOWN ROUTE:UNKNOWN ROUTE:UNKNOWN ROUTE:UNKNOWN RO
     Dates: start: 20210216, end: 20210216
  60. RITUXIMAB [Suspect]
     Active Substance: RITUXIMAB
     Dosage: 9 ML, WEEKLY (3 ML TIW I 3 MILLILITER, 3XW (3 ML, TIW)/9 ML, 1 WK 3 MILLILITER 3XW (3 ML, TIW
     Dates: start: 20210216, end: 20210216
  61. RITUXIMAB [Suspect]
     Active Substance: RITUXIMAB
     Dosage: 9 ML, WEEKLY (3 ML, TIW)
     Dates: start: 20210216, end: 20210216
  62. RITUXIMAB [Suspect]
     Active Substance: RITUXIMAB
     Dosage: 9 ML, WEEKLY (3 ML, TIW I 3 MILLILITER, 3XW (3 ML, TIW))
     Dates: start: 20210216, end: 20210216
  63. RITUXIMAB [Suspect]
     Active Substance: RITUXIMAB
     Dosage: 9 ML, WEEKLY (3 ML, TIW)
     Dates: start: 20210216, end: 20210216
  64. RITUXIMAB [Suspect]
     Active Substance: RITUXIMAB
  65. RITUXIMAB [Suspect]
     Active Substance: RITUXIMAB
  66. RITUXIMAB [Suspect]
     Active Substance: RITUXIMAB
     Dates: start: 20201124
  67. RITUXIMAB [Suspect]
     Active Substance: RITUXIMAB
  68. RITUXIMAB [Suspect]
     Active Substance: RITUXIMAB
  69. RITUXIMAB [Suspect]
     Active Substance: RITUXIMAB
     Dosage: 9 ML, WEEKLY (3 ML, TIW (DOSAGE TEXT: 3 ML, TIW, TIME INTERVAL: 0.33 WK)I 9 ML, 1 WK 3 MILLILITER, 3
     Dates: start: 20201221, end: 20201221
  70. RITUXIMAB [Suspect]
     Active Substance: RITUXIMAB
     Dosage: 9 ML, WEEKLY (3 ML, TIW (DOSAGE TEXT: 3 ML, TIW, TIME INTERVAL: 0.33 WK); ADDITIONAL INFO: ROUTE:UNK
     Dates: start: 20201221, end: 20201221
  71. DOXORUBICIN [Suspect]
     Active Substance: DOXORUBICIN
     Indication: Diffuse large B-cell lymphoma
     Route: 042
     Dates: start: 20201124
  72. DOXORUBICIN [Suspect]
     Active Substance: DOXORUBICIN
     Route: 042
  73. DOXORUBICIN [Suspect]
     Active Substance: DOXORUBICIN
  74. DOXORUBICIN [Suspect]
     Active Substance: DOXORUBICIN
     Route: 042
     Dates: start: 20201124
  75. DOXORUBICIN [Suspect]
     Active Substance: DOXORUBICIN
     Route: 050
     Dates: start: 20201124
  76. DOXORUBICIN [Suspect]
     Active Substance: DOXORUBICIN
     Dosage: 50 MG, WEEKLY
     Route: 042
     Dates: start: 20201124
  77. DOXORUBICIN [Suspect]
     Active Substance: DOXORUBICIN
  78. DOXORUBICIN [Suspect]
     Active Substance: DOXORUBICIN
  79. DOXORUBICIN [Suspect]
     Active Substance: DOXORUBICIN
     Route: 042
  80. DOXORUBICIN [Suspect]
     Active Substance: DOXORUBICIN
     Route: 042
  81. DOXORUBICIN [Suspect]
     Active Substance: DOXORUBICIN
     Route: 042
  82. DOXORUBICIN [Suspect]
     Active Substance: DOXORUBICIN
     Route: 042
  83. DOXORUBICIN [Suspect]
     Active Substance: DOXORUBICIN
     Route: 042
  84. DOXORUBICIN [Suspect]
     Active Substance: DOXORUBICIN
     Route: 042
  85. DOXORUBICIN [Suspect]
     Active Substance: DOXORUBICIN
     Dates: start: 20201124
  86. DOXORUBICIN [Suspect]
     Active Substance: DOXORUBICIN
     Route: 042
  87. DOXORUBICIN [Suspect]
     Active Substance: DOXORUBICIN
     Route: 042
  88. DOXORUBICIN [Suspect]
     Active Substance: DOXORUBICIN
     Route: 042
  89. DOXORUBICIN [Suspect]
     Active Substance: DOXORUBICIN
     Route: 042
     Dates: start: 20201124
  90. GLOFITAMAB [Suspect]
     Active Substance: GLOFITAMAB
     Indication: Diffuse large B-cell lymphoma
  91. GLOFITAMAB [Suspect]
     Active Substance: GLOFITAMAB
     Route: 065
  92. GLOFITAMAB [Suspect]
     Active Substance: GLOFITAMAB
     Route: 065
  93. GLOFITAMAB [Suspect]
     Active Substance: GLOFITAMAB
     Route: 042
     Dates: start: 20201222
  94. GLOFITAMAB [Suspect]
     Active Substance: GLOFITAMAB
     Route: 065
  95. GLOFITAMAB [Suspect]
     Active Substance: GLOFITAMAB
     Route: 065
  96. GLOFITAMAB [Suspect]
     Active Substance: GLOFITAMAB
  97. GLOFITAMAB [Suspect]
     Active Substance: GLOFITAMAB
  98. GLOFITAMAB [Suspect]
     Active Substance: GLOFITAMAB
  99. GLOFITAMAB [Suspect]
     Active Substance: GLOFITAMAB
  100. GLOFITAMAB [Suspect]
     Active Substance: GLOFITAMAB
  101. GLOFITAMAB [Suspect]
     Active Substance: GLOFITAMAB
  102. GLOFITAMAB [Suspect]
     Active Substance: GLOFITAMAB
  103. GLOFITAMAB [Suspect]
     Active Substance: GLOFITAMAB
     Route: 042
  104. GLOFITAMAB [Suspect]
     Active Substance: GLOFITAMAB
     Route: 042
  105. GLOFITAMAB [Suspect]
     Active Substance: GLOFITAMAB
     Route: 042
  106. GLOFITAMAB [Suspect]
     Active Substance: GLOFITAMAB
     Route: 042
  107. GLOFITAMAB [Suspect]
     Active Substance: GLOFITAMAB
     Route: 042
  108. GLOFITAMAB [Suspect]
     Active Substance: GLOFITAMAB
     Route: 042
  109. GLOFITAMAB [Suspect]
     Active Substance: GLOFITAMAB
     Route: 042
  110. GLOFITAMAB [Suspect]
     Active Substance: GLOFITAMAB
     Route: 042
  111. GLOFITAMAB [Suspect]
     Active Substance: GLOFITAMAB
     Route: 042
  112. GLOFITAMAB [Suspect]
     Active Substance: GLOFITAMAB
     Dates: start: 20201220
  113. GLOFITAMAB [Suspect]
     Active Substance: GLOFITAMAB
     Dates: start: 20201220
  114. GLOFITAMAB [Suspect]
     Active Substance: GLOFITAMAB
     Dates: start: 20201220
  115. GLOFITAMAB [Suspect]
     Active Substance: GLOFITAMAB
     Route: 065
     Dates: start: 20201222
  116. GLOFITAMAB [Suspect]
     Active Substance: GLOFITAMAB
     Route: 065
     Dates: start: 20201222
  117. GLOFITAMAB [Suspect]
     Active Substance: GLOFITAMAB
     Route: 065
     Dates: start: 20201222
  118. GLOFITAMAB [Suspect]
     Active Substance: GLOFITAMAB
     Dosage: 5 MG, WEEKLY (2.5 MG EVERY 3 WEEKS)
     Route: 042
  119. GLOFITAMAB [Suspect]
     Active Substance: GLOFITAMAB
     Route: 042
  120. GLOFITAMAB [Suspect]
     Active Substance: GLOFITAMAB
     Route: 042
  121. GLOFITAMAB [Suspect]
     Active Substance: GLOFITAMAB
  122. GLOFITAMAB [Suspect]
     Active Substance: GLOFITAMAB
     Route: 042
     Dates: start: 20201222
  123. GLOFITAMAB [Suspect]
     Active Substance: GLOFITAMAB
     Dates: start: 20201222
  124. GLOFITAMAB [Suspect]
     Active Substance: GLOFITAMAB
     Dates: start: 20201230, end: 20201230
  125. GLOFITAMAB [Suspect]
     Active Substance: GLOFITAMAB
     Dates: start: 20210119, end: 20210119
  126. GLOFITAMAB [Suspect]
     Active Substance: GLOFITAMAB
     Dates: start: 20210209, end: 20210209
  127. GLOFITAMAB [Suspect]
     Active Substance: GLOFITAMAB
     Route: 042
     Dates: start: 20210302, end: 20210302
  128. GLOFITAMAB [Suspect]
     Active Substance: GLOFITAMAB
     Dates: start: 20210302, end: 20210302
  129. GLOFITAMAB [Suspect]
     Active Substance: GLOFITAMAB
     Route: 042
     Dates: start: 20210309
  130. GLOFITAMAB [Suspect]
     Active Substance: GLOFITAMAB
     Route: 042
     Dates: start: 20210323, end: 20210323
  131. GLOFITAMAB [Suspect]
     Active Substance: GLOFITAMAB
  132. GLOFITAMAB [Suspect]
     Active Substance: GLOFITAMAB
  133. GLOFITAMAB [Suspect]
     Active Substance: GLOFITAMAB
  134. GLOFITAMAB [Suspect]
     Active Substance: GLOFITAMAB
     Route: 042
  135. GLOFITAMAB [Suspect]
     Active Substance: GLOFITAMAB
     Dates: start: 20201222
  136. GLOFITAMAB [Suspect]
     Active Substance: GLOFITAMAB
     Route: 042
  137. GLOFITAMAB [Suspect]
     Active Substance: GLOFITAMAB
  138. GLOFITAMAB [Suspect]
     Active Substance: GLOFITAMAB
  139. GLOFITAMAB [Suspect]
     Active Substance: GLOFITAMAB
     Route: 042
  140. VALGANCICLOVIR [Suspect]
     Active Substance: VALGANCICLOVIR
     Indication: Cytomegalovirus viraemia
     Dates: start: 20210426, end: 20210513
  141. VALGANCICLOVIR [Suspect]
     Active Substance: VALGANCICLOVIR
     Indication: Product used for unknown indication
     Dates: start: 20210426, end: 20210513
  142. VALGANCICLOVIR [Suspect]
     Active Substance: VALGANCICLOVIR
     Dates: start: 20210426, end: 20210513
  143. VALGANCICLOVIR [Suspect]
     Active Substance: VALGANCICLOVIR
     Dates: start: 20210513
  144. VALGANCICLOVIR [Suspect]
     Active Substance: VALGANCICLOVIR
     Dates: start: 20210518
  145. VALGANCICLOVIR [Suspect]
     Active Substance: VALGANCICLOVIR
     Dates: start: 20210426, end: 20210513
  146. VINCRISTINE [Suspect]
     Active Substance: VINCRISTINE
     Indication: Diffuse large B-cell lymphoma
     Route: 042
     Dates: start: 20201124
  147. VINCRISTINE [Suspect]
     Active Substance: VINCRISTINE
     Route: 065
  148. VINCRISTINE [Suspect]
     Active Substance: VINCRISTINE
     Route: 065
  149. VINCRISTINE [Suspect]
     Active Substance: VINCRISTINE
     Route: 065
  150. VINCRISTINE [Suspect]
     Active Substance: VINCRISTINE
     Route: 065
  151. VINCRISTINE [Suspect]
     Active Substance: VINCRISTINE
  152. VINCRISTINE [Suspect]
     Active Substance: VINCRISTINE
  153. VINCRISTINE [Suspect]
     Active Substance: VINCRISTINE
  154. VINCRISTINE [Suspect]
     Active Substance: VINCRISTINE
  155. VINCRISTINE [Suspect]
     Active Substance: VINCRISTINE
     Dosage: 6 MG/M2, WEEKLY (TOTAL VOLUME 50 ML DATE OF MOST RECENT DOSE PRIOR TO FIRST EPISODE OF NEUTROPENIA 2
     Route: 042
     Dates: start: 20201124
  156. VINCRISTINE [Suspect]
     Active Substance: VINCRISTINE
  157. VINCRISTINE [Suspect]
     Active Substance: VINCRISTINE
  158. VINCRISTINE [Suspect]
     Active Substance: VINCRISTINE
  159. VINCRISTINE [Suspect]
     Active Substance: VINCRISTINE
  160. VINCRISTINE [Suspect]
     Active Substance: VINCRISTINE
     Dates: start: 20201124
  161. VINCRISTINE [Suspect]
     Active Substance: VINCRISTINE
     Route: 042
     Dates: start: 20201124
  162. VINCRISTINE [Suspect]
     Active Substance: VINCRISTINE
     Dates: start: 20201124
  163. VINCRISTINE [Suspect]
     Active Substance: VINCRISTINE
     Route: 042
     Dates: start: 20201124
  164. VINCRISTINE [Suspect]
     Active Substance: VINCRISTINE
     Dates: start: 20201124
  165. VINCRISTINE [Suspect]
     Active Substance: VINCRISTINE
     Dosage: 6 MG/M2, WEEKLY (9 MG/M2, THREE TIMES IN WEEK, TOTAL VOLUME: 50 ML DATE OF MOST RECENT DOSE PRIOR TO
     Dates: start: 20201121
  166. VINCRISTINE [Suspect]
     Active Substance: VINCRISTINE
     Dates: start: 20201121
  167. VINCRISTINE [Suspect]
     Active Substance: VINCRISTINE
     Route: 042
     Dates: start: 20201124
  168. VINCRISTINE [Suspect]
     Active Substance: VINCRISTINE
  169. VINCRISTINE [Suspect]
     Active Substance: VINCRISTINE
  170. VINCRISTINE [Suspect]
     Active Substance: VINCRISTINE
  171. VINCRISTINE [Suspect]
     Active Substance: VINCRISTINE
     Dates: start: 20201215, end: 20201215
  172. VINCRISTINE [Suspect]
     Active Substance: VINCRISTINE
     Dates: start: 20210105, end: 20210105
  173. VINCRISTINE [Suspect]
     Active Substance: VINCRISTINE
     Dates: start: 20210126, end: 20210126
  174. VINCRISTINE [Suspect]
     Active Substance: VINCRISTINE
     Dates: start: 20210216
  175. VINCRISTINE [Suspect]
     Active Substance: VINCRISTINE
     Dates: start: 20210309, end: 20210309
  176. VINCRISTINE [Suspect]
     Active Substance: VINCRISTINE
  177. VINCRISTINE [Suspect]
     Active Substance: VINCRISTINE
  178. VINCRISTINE [Suspect]
     Active Substance: VINCRISTINE
  179. DOXORUBICIN HYDROCHLORIDE [Suspect]
     Active Substance: DOXORUBICIN HYDROCHLORIDE
     Indication: Diffuse large B-cell lymphoma
     Dosage: 50 MG/M2, WEEKLY (50 MG/M2, TIW (DATE OF MOST RECENT DOSE PRIOR TO FIRST EPISODE OF NEUTROPENIA (TOT
     Route: 065
     Dates: start: 20201124
  180. DOXORUBICIN HYDROCHLORIDE [Suspect]
     Active Substance: DOXORUBICIN HYDROCHLORIDE
     Dates: start: 20201124
  181. DOXORUBICIN HYDROCHLORIDE [Suspect]
     Active Substance: DOXORUBICIN HYDROCHLORIDE
     Dates: start: 20201124
  182. DOXORUBICIN HYDROCHLORIDE [Suspect]
     Active Substance: DOXORUBICIN HYDROCHLORIDE
     Dosage: 50 MILLIGRAM/SQ. METER, 3XW (50 MG/M2, TIW (DATE OF MOST RECENT DOSE PRIOR TO FIRST EPISODE OF
     Dates: start: 20201124
  183. BENDAMUSTINE [Suspect]
     Active Substance: BENDAMUSTINE
     Indication: Prophylaxis
  184. BENDAMUSTINE [Suspect]
     Active Substance: BENDAMUSTINE
     Indication: Product used for unknown indication
  185. BENDAMUSTINE [Suspect]
     Active Substance: BENDAMUSTINE
  186. BENDAMUSTINE [Suspect]
     Active Substance: BENDAMUSTINE
  187. BENDAMUSTINE [Suspect]
     Active Substance: BENDAMUSTINE
  188. BENDAMUSTINE [Suspect]
     Active Substance: BENDAMUSTINE
  189. BENDAMUSTINE [Suspect]
     Active Substance: BENDAMUSTINE
  190. BENDAMUSTINE [Suspect]
     Active Substance: BENDAMUSTINE
  191. BENDAMUSTINE [Suspect]
     Active Substance: BENDAMUSTINE
  192. BENDAMUSTINE [Suspect]
     Active Substance: BENDAMUSTINE
  193. BENDAMUSTINE [Suspect]
     Active Substance: BENDAMUSTINE
  194. BENDAMUSTINE [Suspect]
     Active Substance: BENDAMUSTINE
  195. BENDAMUSTINE [Suspect]
     Active Substance: BENDAMUSTINE
  196. BENDAMUSTINE [Suspect]
     Active Substance: BENDAMUSTINE
  197. BENDAMUSTINE [Suspect]
     Active Substance: BENDAMUSTINE
  198. BENDAMUSTINE [Suspect]
     Active Substance: BENDAMUSTINE
  199. ALLOPURINOL [Concomitant]
     Active Substance: ALLOPURINOL
     Indication: Prophylaxis
     Route: 065
     Dates: start: 20201118
  200. ALLOPURINOL [Concomitant]
     Active Substance: ALLOPURINOL
     Dates: start: 20201118
  201. ALLOPURINOL [Concomitant]
     Active Substance: ALLOPURINOL
     Dates: start: 20201118
  202. ALLOPURINOL [Concomitant]
     Active Substance: ALLOPURINOL
     Dates: start: 20201118
  203. ALLOPURINOL [Concomitant]
     Active Substance: ALLOPURINOL
     Dates: start: 20201118
  204. ALLOPURINOL [Concomitant]
     Active Substance: ALLOPURINOL
     Dates: start: 20201118
  205. ALLOPURINOL [Concomitant]
     Active Substance: ALLOPURINOL
     Dates: start: 20201118
  206. ALLOPURINOL [Concomitant]
     Active Substance: ALLOPURINOL
     Dates: start: 20201118
  207. ALLOPURINOL [Concomitant]
     Active Substance: ALLOPURINOL
     Dates: start: 20201118
  208. ALLOPURINOL [Concomitant]
     Active Substance: ALLOPURINOL
     Dates: start: 20201118
  209. CHLORPHENIRAMINE MALEATE [Concomitant]
     Active Substance: CHLORPHENIRAMINE MALEATE
     Indication: Prophylaxis
     Dates: start: 20201124, end: 20201124
  210. CHLORPHENIRAMINE MALEATE [Concomitant]
     Active Substance: CHLORPHENIRAMINE MALEATE
     Indication: Rash maculo-papular
     Dates: start: 20201215, end: 20201215
  211. CHLORPHENIRAMINE MALEATE [Concomitant]
     Active Substance: CHLORPHENIRAMINE MALEATE
     Dates: start: 20210126, end: 20210126
  212. CHLORPHENIRAMINE MALEATE [Concomitant]
     Active Substance: CHLORPHENIRAMINE MALEATE
     Dates: start: 20210302, end: 20210302
  213. CHLORPHENIRAMINE MALEATE [Concomitant]
     Active Substance: CHLORPHENIRAMINE MALEATE
     Dates: start: 20210323, end: 20210323
  214. CHLORPHENIRAMINE MALEATE [Concomitant]
     Active Substance: CHLORPHENIRAMINE MALEATE
     Dates: start: 20210216, end: 20210216
  215. CHLORPHENIRAMINE MALEATE [Concomitant]
     Active Substance: CHLORPHENIRAMINE MALEATE
     Dates: start: 20210119, end: 20210119
  216. CHLORPHENIRAMINE MALEATE [Concomitant]
     Active Substance: CHLORPHENIRAMINE MALEATE
     Dates: start: 20210309, end: 20210309
  217. CHLORPHENIRAMINE MALEATE [Concomitant]
     Active Substance: CHLORPHENIRAMINE MALEATE
     Route: 065
     Dates: start: 20201217
  218. CHLORPHENIRAMINE MALEATE [Concomitant]
     Active Substance: CHLORPHENIRAMINE MALEATE
     Dates: start: 20210209, end: 20210209
  219. CHLORPHENIRAMINE MALEATE [Concomitant]
     Active Substance: CHLORPHENIRAMINE MALEATE
     Dates: start: 20201124, end: 20201124
  220. CHLORPHENIRAMINE MALEATE [Concomitant]
     Active Substance: CHLORPHENIRAMINE MALEATE
     Route: 042
     Dates: start: 20210323, end: 20210323
  221. CHLORPHENIRAMINE MALEATE [Concomitant]
     Active Substance: CHLORPHENIRAMINE MALEATE
     Dosage: 20 MG, WEEKLY
     Dates: start: 20201124, end: 20201124
  222. CHLORPHENIRAMINE MALEATE [Concomitant]
     Active Substance: CHLORPHENIRAMINE MALEATE
     Dates: start: 20201124, end: 20201124
  223. CHLORPHENIRAMINE MALEATE [Concomitant]
     Active Substance: CHLORPHENIRAMINE MALEATE
     Dates: start: 20201217
  224. CHLORPHENIRAMINE MALEATE [Concomitant]
     Active Substance: CHLORPHENIRAMINE MALEATE
     Dates: start: 20201124, end: 20201124
  225. CHLORPHENIRAMINE MALEATE [Concomitant]
     Active Substance: CHLORPHENIRAMINE MALEATE
     Dates: start: 20201124, end: 20201124
  226. CHLORPHENIRAMINE MALEATE [Concomitant]
     Active Substance: CHLORPHENIRAMINE MALEATE
     Dates: start: 20201215, end: 20201215
  227. CHLORPHENIRAMINE MALEATE [Concomitant]
     Active Substance: CHLORPHENIRAMINE MALEATE
     Dates: start: 20201124, end: 20201124
  228. CHLORPHENIRAMINE MALEATE [Concomitant]
     Active Substance: CHLORPHENIRAMINE MALEATE
     Dates: start: 20210302, end: 20210302
  229. CHLORPHENIRAMINE MALEATE [Concomitant]
     Active Substance: CHLORPHENIRAMINE MALEATE
     Dates: start: 20201217
  230. CODEINE [Concomitant]
     Active Substance: CODEINE
     Indication: Pain
     Route: 065
     Dates: start: 20201224, end: 20201224
  231. CODEINE [Concomitant]
     Active Substance: CODEINE
     Dates: start: 20201123
  232. CODEINE [Concomitant]
     Active Substance: CODEINE
     Dates: start: 20201123
  233. CODEINE [Concomitant]
     Active Substance: CODEINE
     Dates: start: 20201224, end: 20201224
  234. CODEINE [Concomitant]
     Active Substance: CODEINE
     Dates: start: 20201123
  235. CODEINE [Concomitant]
     Active Substance: CODEINE
     Dates: start: 20201224, end: 20201224
  236. CODEINE [Concomitant]
     Active Substance: CODEINE
     Dates: start: 20201224, end: 20201224
  237. CODEINE [Concomitant]
     Active Substance: CODEINE
     Dates: start: 20201224, end: 20201224
  238. CODEINE [Concomitant]
     Active Substance: CODEINE
     Dates: start: 20201224, end: 20201224
  239. CODEINE [Concomitant]
     Active Substance: CODEINE
     Dates: start: 20201123
  240. CODEINE [Concomitant]
     Active Substance: CODEINE
     Dates: start: 20201224, end: 20201224
  241. CODEINE [Concomitant]
     Active Substance: CODEINE
     Dates: start: 20201123
  242. CODEINE [Concomitant]
     Active Substance: CODEINE
     Route: 065
     Dates: start: 20201224, end: 20201224
  243. FILGRASTIM [Concomitant]
     Active Substance: FILGRASTIM
     Indication: Prophylaxis
     Route: 065
     Dates: start: 20201129, end: 20201206
  244. FILGRASTIM [Concomitant]
     Active Substance: FILGRASTIM
     Indication: Prophylaxis
     Route: 065
     Dates: start: 20201220
  245. FILGRASTIM [Concomitant]
     Active Substance: FILGRASTIM
     Dates: start: 20201220
  246. FILGRASTIM [Concomitant]
     Active Substance: FILGRASTIM
     Dates: start: 20201129, end: 20201206
  247. FILGRASTIM [Concomitant]
     Active Substance: FILGRASTIM
     Dates: start: 20201220
  248. FILGRASTIM [Concomitant]
     Active Substance: FILGRASTIM
     Dates: start: 20201220
  249. FILGRASTIM [Concomitant]
     Active Substance: FILGRASTIM
     Dates: start: 20201129, end: 20201206
  250. FILGRASTIM [Concomitant]
     Active Substance: FILGRASTIM
     Dates: start: 20201129, end: 20201206
  251. FILGRASTIM [Concomitant]
     Active Substance: FILGRASTIM
     Dates: start: 20201220
  252. FILGRASTIM [Concomitant]
     Active Substance: FILGRASTIM
     Dates: start: 20201129, end: 20201206
  253. OMEPRAZOLE [Concomitant]
     Active Substance: OMEPRAZOLE
     Indication: Gastrointestinal disorder prophylaxis
     Route: 050
     Dates: start: 20201118
  254. OMEPRAZOLE [Concomitant]
     Active Substance: OMEPRAZOLE
     Indication: Product used for unknown indication
     Dates: start: 20201118
  255. OMEPRAZOLE [Concomitant]
     Active Substance: OMEPRAZOLE
  256. OMEPRAZOLE [Concomitant]
     Active Substance: OMEPRAZOLE
     Dates: start: 20201118
  257. OMEPRAZOLE [Concomitant]
     Active Substance: OMEPRAZOLE
  258. OMEPRAZOLE [Concomitant]
     Active Substance: OMEPRAZOLE
     Route: 050
     Dates: start: 20201118
  259. ACETAMINOPHEN [Concomitant]
     Active Substance: ACETAMINOPHEN
     Indication: Prophylaxis
     Route: 048
     Dates: start: 20201124, end: 20201124
  260. ACETAMINOPHEN [Concomitant]
     Active Substance: ACETAMINOPHEN
     Route: 048
     Dates: start: 20201215, end: 20201215
  261. ACETAMINOPHEN [Concomitant]
     Active Substance: ACETAMINOPHEN
     Route: 048
     Dates: start: 20210119, end: 20210119
  262. ACETAMINOPHEN [Concomitant]
     Active Substance: ACETAMINOPHEN
     Route: 065
     Dates: start: 20201123
  263. ACETAMINOPHEN [Concomitant]
     Active Substance: ACETAMINOPHEN
     Route: 065
     Dates: start: 20210126, end: 20210126
  264. ACETAMINOPHEN [Concomitant]
     Active Substance: ACETAMINOPHEN
     Route: 048
     Dates: start: 20210323, end: 20210323
  265. ACETAMINOPHEN [Concomitant]
     Active Substance: ACETAMINOPHEN
     Route: 048
     Dates: start: 20210302, end: 20210302
  266. ACETAMINOPHEN [Concomitant]
     Active Substance: ACETAMINOPHEN
     Dates: start: 20201123
  267. ACETAMINOPHEN [Concomitant]
     Active Substance: ACETAMINOPHEN
     Route: 048
     Dates: start: 20210126, end: 20210126
  268. ACETAMINOPHEN [Concomitant]
     Active Substance: ACETAMINOPHEN
     Route: 048
     Dates: start: 20210209, end: 20210209
  269. ACETAMINOPHEN [Concomitant]
     Active Substance: ACETAMINOPHEN
     Route: 048
     Dates: start: 20210309, end: 20210309
  270. ACETAMINOPHEN [Concomitant]
     Active Substance: ACETAMINOPHEN
     Dates: start: 20201123
  271. ACETAMINOPHEN [Concomitant]
     Active Substance: ACETAMINOPHEN
     Dates: start: 20210126, end: 20210126
  272. ACETAMINOPHEN [Concomitant]
     Active Substance: ACETAMINOPHEN
     Dates: start: 20210126, end: 20210126
  273. ACETAMINOPHEN [Concomitant]
     Active Substance: ACETAMINOPHEN
     Route: 048
     Dates: start: 20210216, end: 20210216
  274. ACETAMINOPHEN [Concomitant]
     Active Substance: ACETAMINOPHEN
     Dates: start: 20210323, end: 20210323
  275. ACETAMINOPHEN [Concomitant]
     Active Substance: ACETAMINOPHEN
     Route: 048
     Dates: start: 20210123, end: 20210123
  276. SENNA [Concomitant]
     Active Substance: SENNOSIDES
     Indication: Constipation
     Route: 065
     Dates: start: 20201124
  277. SENNA [Concomitant]
     Active Substance: SENNOSIDES
     Dates: start: 20201124
  278. SENNA [Concomitant]
     Active Substance: SENNOSIDES
     Dates: start: 20201124
  279. SENNA [Concomitant]
     Active Substance: SENNOSIDES
     Dates: start: 20201124
  280. SENNA [Concomitant]
     Active Substance: SENNOSIDES
     Dates: start: 20201124
  281. SENNA [Concomitant]
     Active Substance: SENNOSIDES
     Dates: start: 20201124
  282. SENNA [Concomitant]
     Active Substance: SENNOSIDES
     Dates: start: 20201124
  283. SENNA [Concomitant]
     Active Substance: SENNOSIDES
     Dates: start: 20201124
  284. SENNA [Concomitant]
     Active Substance: SENNOSIDES
     Dates: start: 20201124
  285. SENNA [Concomitant]
     Active Substance: SENNOSIDES
     Dates: start: 20201124
  286. SENNA [Concomitant]
     Active Substance: SENNOSIDES
     Dates: start: 20201124
  287. DEXAMETHASONE [Concomitant]
     Active Substance: DEXAMETHASONE
     Indication: Product used for unknown indication
     Route: 042
     Dates: start: 20210209, end: 20210209
  288. DEXAMETHASONE [Concomitant]
     Active Substance: DEXAMETHASONE
     Route: 042
     Dates: start: 20210323, end: 20210323
  289. DEXAMETHASONE [Concomitant]
     Active Substance: DEXAMETHASONE
     Route: 042
     Dates: start: 20210119, end: 20210119
  290. DEXAMETHASONE [Concomitant]
     Active Substance: DEXAMETHASONE
     Route: 042
     Dates: start: 20210302, end: 20210302
  291. DEXAMETHASONE [Concomitant]
     Active Substance: DEXAMETHASONE
     Route: 042
     Dates: start: 20210302, end: 20210302
  292. DEXAMETHASONE [Concomitant]
     Active Substance: DEXAMETHASONE
     Route: 042
     Dates: start: 20210323, end: 20210323
  293. DEXAMETHASONE [Concomitant]
     Active Substance: DEXAMETHASONE
     Route: 042
     Dates: start: 20210119, end: 20210119
  294. DEXAMETHASONE [Concomitant]
     Active Substance: DEXAMETHASONE
     Route: 042
     Dates: start: 20210209, end: 20210209
  295. DEXAMETHASONE [Concomitant]
     Active Substance: DEXAMETHASONE
     Route: 042
     Dates: start: 20210302, end: 20210302
  296. DEXAMETHASONE [Concomitant]
     Active Substance: DEXAMETHASONE
     Route: 042
     Dates: start: 20210209, end: 20210209
  297. DEXAMETHASONE [Concomitant]
     Active Substance: DEXAMETHASONE
     Route: 042
     Dates: start: 20210119, end: 20210119
  298. DEXAMETHASONE [Concomitant]
     Active Substance: DEXAMETHASONE
     Route: 042
     Dates: start: 20210323, end: 20210323
  299. DEXAMETHASONE [Concomitant]
     Active Substance: DEXAMETHASONE
     Route: 042
     Dates: start: 20210119, end: 20210119
  300. DEXAMETHASONE [Concomitant]
     Active Substance: DEXAMETHASONE
     Dates: start: 20210119, end: 20210119
  301. DEXAMETHASONE [Concomitant]
     Active Substance: DEXAMETHASONE
  302. DEXAMETHASONE [Concomitant]
     Active Substance: DEXAMETHASONE
     Dates: start: 20210119, end: 20210119
  303. DEXAMETHASONE [Concomitant]
     Active Substance: DEXAMETHASONE
     Route: 042
     Dates: start: 20210323, end: 20210323
  304. DEXAMETHASONE [Concomitant]
     Active Substance: DEXAMETHASONE
     Dates: start: 20210302, end: 20210302
  305. DEXAMETHASONE [Concomitant]
     Active Substance: DEXAMETHASONE
     Dates: start: 20210209, end: 20210209
  306. DEXAMETHASONE [Concomitant]
     Active Substance: DEXAMETHASONE
     Dates: start: 20210119, end: 20210119
  307. DEXAMETHASONE [Concomitant]
     Active Substance: DEXAMETHASONE
     Route: 042
     Dates: start: 20210323, end: 20210323
  308. SENOKOT [Concomitant]
     Active Substance: SENNOSIDES
     Indication: Constipation
  309. SENOKOT [Concomitant]
     Active Substance: SENNOSIDES
  310. SENOKOT [Concomitant]
     Active Substance: SENNOSIDES
     Dates: start: 20201124
  311. SARS-CoV-2 vaccine [Concomitant]
     Indication: Product used for unknown indication
  312. SARS-CoV-2 vaccine [Concomitant]
  313. BENDAMUSTINE [Concomitant]
     Active Substance: BENDAMUSTINE
     Indication: Product used for unknown indication
  314. PREDNISOLONE [Concomitant]
     Active Substance: PREDNISOLONE
     Indication: Diffuse large B-cell lymphoma
     Dates: start: 20201124
  315. PREDNISOLONE [Concomitant]
     Active Substance: PREDNISOLONE
     Indication: Product used for unknown indication
     Route: 048
     Dates: start: 20201118, end: 20201122

REACTIONS (10)
  - Death [Fatal]
  - Neutropenia [Recovered/Resolved]
  - Neutropenia [Recovered/Resolved]
  - Neutropenia [Recovered/Resolved]
  - Neutropenia [Recovered/Resolved]
  - Product use in unapproved indication [Unknown]
  - Off label use [Unknown]
  - Product use issue [Unknown]
  - Overdose [Unknown]
  - Underdose [Unknown]

NARRATIVE: CASE EVENT DATE: 20201124
